FAERS Safety Report 9325124 (Version 1)
Quarter: 2013Q2

REPORT INFORMATION
  Report Type: Spontaneous
  Country: SE (occurrence: SE)
  Receive Date: 20130603
  Receipt Date: 20130603
  Transmission Date: 20140414
  Serious: Yes (Other)
  Sender: FDA-Public Use
  Company Number: SE-B.I. PHARMACEUTICALS,INC./RIDGEFIELD-2013-SW-00288SW

PATIENT
  Sex: Male

DRUGS (1)
  1. SPIRIVA [Suspect]

REACTIONS (5)
  - Local swelling [Unknown]
  - Back pain [Unknown]
  - Arthralgia [Unknown]
  - Ear swelling [Unknown]
  - Deafness [Unknown]
